FAERS Safety Report 5269736-7 (Version None)
Quarter: 2007Q1

REPORT INFORMATION
  Report Type: 
  Country: None (occurrence: None)
  Receive Date: 20070320
  Receipt Date: 20070312
  Transmission Date: 20070707
  Serious: Yes (Hospitalization)
  Sender: FDA-Public Use
  Company Number: GB-ROCHE-483537

PATIENT
  Age: 53 Year
  Sex: Female
  Weight: 90 kg

DRUGS (3)
  1. XENICAL [Suspect]
     Indication: OBESITY
     Route: 048
     Dates: start: 20060808
  2. ASPIRIN [Concomitant]
     Route: 048
  3. UNSPECIFIED MEDICATIONS [Concomitant]

REACTIONS (2)
  - CHOLECYSTITIS INFECTIVE [None]
  - CHOLECYSTOSTOMY [None]
